FAERS Safety Report 8419978-4 (Version None)
Quarter: 2012Q2

REPORT INFORMATION
  Report Type: 
  Country: None (occurrence: None)
  Receive Date: 20120607
  Receipt Date: 20120531
  Transmission Date: 20120825
  Serious: Yes (Other)
  Sender: FDA-Public Use
  Company Number: BR-ROCHE-774215

PATIENT
  Sex: Male
  Weight: 85 kg

DRUGS (3)
  1. PREDNISONE [Concomitant]
     Indication: CRYOGLOBULINAEMIA
     Dates: start: 20100911
  2. COPEGUS [Suspect]
     Indication: HEPATITIS C
     Route: 048
     Dates: start: 20080317, end: 20090205
  3. PEGASYS [Suspect]
     Indication: HEPATITIS C
     Route: 058
     Dates: start: 20080317, end: 20090205

REACTIONS (1)
  - CRYOGLOBULINAEMIA [None]
